FAERS Safety Report 13827520 (Version 1)
Quarter: 2017Q3

REPORT INFORMATION
  Report Type: Other
  Country: GB (occurrence: FR)
  Receive Date: 20170802
  Receipt Date: 20170802
  Transmission Date: 20171127
  Serious: Yes (Death, Life-Threatening, Hospitalization, Other)
  Sender: FDA-Public Use
  Company Number: FR-INTERNATIONAL MEDICATION SYSTEMS, LIMITED-2024097

PATIENT
  Age: 34 Year
  Sex: Male

DRUGS (9)
  1. MORPHINE [Suspect]
     Active Substance: MORPHINE
     Indication: ABDOMINAL PAIN
     Route: 042
     Dates: start: 20120625
  2. VALPROIC ACID. [Suspect]
     Active Substance: VALPROIC ACID
  3. DIAZEPAM. [Suspect]
     Active Substance: DIAZEPAM
  4. LOXAPINE. [Suspect]
     Active Substance: LOXAPINE
     Route: 048
     Dates: start: 20120614
  5. QUETIAPINE. [Suspect]
     Active Substance: QUETIAPINE
     Route: 048
     Dates: start: 20120605
  6. LOXAPINE. [Suspect]
     Active Substance: LOXAPINE
     Route: 048
     Dates: start: 20120614
  7. LOXAPINE. [Suspect]
     Active Substance: LOXAPINE
     Route: 030
     Dates: start: 20120625
  8. TROPATEPINE [Suspect]
     Active Substance: TROPATEPINE
     Dates: start: 20120605
  9. TRAMADOL. [Suspect]
     Active Substance: TRAMADOL
     Dates: start: 20120625

REACTIONS (14)
  - Gastric haemorrhage [Fatal]
  - Pneumonia pseudomonal [Fatal]
  - Staphylococcal bacteraemia [Fatal]
  - Necrotising colitis [Fatal]
  - Subileus [Fatal]
  - Metabolic acidosis [Fatal]
  - Septic shock [Fatal]
  - Cardiac arrest [Fatal]
  - Candida infection [Fatal]
  - Intestinal ischaemia [Fatal]
  - Large intestine perforation [Fatal]
  - Death [Fatal]
  - Shock haemorrhagic [Fatal]
  - Multiple organ dysfunction syndrome [Fatal]

NARRATIVE: CASE EVENT DATE: 20120625
